FAERS Safety Report 9695711 (Version 1)
Quarter: 2013Q4

REPORT INFORMATION
  Report Type: Spontaneous
  Country: US (occurrence: None)
  Receive Date: 20131118
  Receipt Date: 20131118
  Transmission Date: 20140711
  Serious: Yes (Hospitalization)
  Sender: FDA-Public Use
  Company Number: None

PATIENT
  Age: 68 Year
  Sex: 0
  Weight: 69.85 kg

DRUGS (1)
  1. SYMBICORT [Suspect]
     Indication: EMPHYSEMA
     Dosage: INHALE 2 PUFFS BY MOUTH TWICE DAILY INHALATION
     Route: 055
     Dates: start: 20111223, end: 20111223

REACTIONS (4)
  - Respiratory depression [None]
  - Anaphylactic shock [None]
  - Skin burning sensation [None]
  - Fall [None]
